FAERS Safety Report 16639016 (Version 1)
Quarter: 2019Q3

REPORT INFORMATION
  Report Type: Spontaneous
  Country: GB (occurrence: GB)
  Receive Date: 20190726
  Receipt Date: 20190726
  Transmission Date: 20191004
  Serious: Yes (Other)
  Sender: FDA-Public Use
  Company Number: GB-TEVA-2019-GB-1083777

PATIENT
  Age: 80 Year
  Sex: Female
  Weight: 50 kg

DRUGS (16)
  1. LANSOPRAZOLE. [Concomitant]
     Active Substance: LANSOPRAZOLE
     Dates: start: 20190102
  2. CLARITHROMYCIN. [Suspect]
     Active Substance: CLARITHROMYCIN
     Dosage: FOR 5 DAYS.
     Dates: start: 20190620
  3. GLYCERYL TRINITRATE [Concomitant]
     Active Substance: NITROGLYCERIN
     Dates: start: 20190102
  4. NICORANDIL [Concomitant]
     Active Substance: NICORANDIL
     Dates: start: 20190102
  5. PARACETAMOL [Concomitant]
     Active Substance: ACETAMINOPHEN
     Dosage: TAKE 1 OR 2 UP TO 4 TIMES A DAY
     Dates: start: 20190102
  6. SIMVASTATIN. [Concomitant]
     Active Substance: SIMVASTATIN
     Dosage: AT NIGHT
     Dates: start: 20190102
  7. CASSIA [Concomitant]
     Dosage: TAKE 1 OR 2 AT NIGHT
     Dates: start: 20190102
  8. SALAMOL [Concomitant]
     Active Substance: ALBUTEROL
     Route: 055
     Dates: start: 20190102
  9. LORAZEPAM. [Concomitant]
     Active Substance: LORAZEPAM
     Dosage: AT NIGHT
     Dates: start: 20190102
  10. LACTULOSE. [Concomitant]
     Active Substance: LACTULOSE
     Dosage: 15ML TWICE DAILY
     Dates: start: 20190102
  11. ZOMORPH [Concomitant]
     Active Substance: MORPHINE SULFATE
     Dates: start: 20190102
  12. LEVETIRACETAM. [Concomitant]
     Active Substance: LEVETIRACETAM
     Dates: start: 20190102
  13. FUROSEMIDE. [Concomitant]
     Active Substance: FUROSEMIDE
     Dates: start: 20190102
  14. ZEMTARD MR [Concomitant]
     Dates: start: 20190102
  15. DUORESP SPIROMAX [Concomitant]
     Active Substance: BUDESONIDE\FORMOTEROL
     Dosage: ONE DOSE TWICE A DAY,  PLUS 1 DOSE IF NEEDED
     Route: 055
     Dates: start: 20190102
  16. MORPHINE SULFATE. [Concomitant]
     Active Substance: MORPHINE SULFATE
     Dosage: 2.5ML SPOON EVERY 2 HOURS
     Dates: start: 20190102

REACTIONS (3)
  - Throat tightness [Unknown]
  - Nausea [Unknown]
  - Arthralgia [Recovered/Resolved]

NARRATIVE: CASE EVENT DATE: 20190624
